FAERS Safety Report 8106314-6 (Version None)
Quarter: 2012Q1

REPORT INFORMATION
  Report Type: 
  Country: None (occurrence: None)
  Receive Date: 20120202
  Receipt Date: 20120125
  Transmission Date: 20120608
  Serious: Yes (Hospitalization)
  Sender: FDA-Public Use
  Company Number: SE-SANOFI-AVENTIS-2012SA005248

PATIENT
  Age: 78 Year
  Sex: Male

DRUGS (1)
  1. GLYBURIDE [Suspect]
     Indication: DIABETES MELLITUS
     Route: 048
     Dates: end: 20110512

REACTIONS (3)
  - PANCYTOPENIA [None]
  - VOMITING [None]
  - HYPOGLYCAEMIA [None]
